FAERS Safety Report 20695436 (Version 1)
Quarter: 2022Q2

REPORT INFORMATION
  Report Type: Spontaneous
  Country: US (occurrence: None)
  Receive Date: 20220408
  Receipt Date: 20220408
  Transmission Date: 20220721
  Serious: No
  Sender: FDA-Public Use
  Company Number: None

PATIENT
  Age: 41 Year
  Sex: Male

DRUGS (4)
  1. ANASTROZOLE\TESTOSTERONE [Suspect]
     Active Substance: ANASTROZOLE\TESTOSTERONE
     Indication: Hormone replacement therapy
     Dosage: OTHER FREQUENCY : ONCE PER WEEK;?
     Route: 030
     Dates: start: 20210211
  2. Compounded Gonadorelin [Concomitant]
  3. Compounded Anastrozole/Progesterone capsule [Concomitant]
  4. OTC DIM [Concomitant]

REACTIONS (6)
  - Injection site swelling [None]
  - Injection site pain [None]
  - Gait disturbance [None]
  - Pain [None]
  - Injection site mass [None]
  - Recalled product administered [None]

NARRATIVE: CASE EVENT DATE: 20220127
